FAERS Safety Report 4921797-8 (Version None)
Quarter: 2006Q1

REPORT INFORMATION
  Report Type: 
  Country: None (occurrence: None)
  Receive Date: 20060224
  Receipt Date: 20050822
  Transmission Date: 20060701
  Serious: No
  Sender: FDA-Public Use
  Company Number: US-BRISTOL-MYERS SQUIBB COMPANY-13084959

PATIENT
  Sex: Female
  Weight: 54 kg

DRUGS (2)
  1. VAGISTAT-1 [Suspect]
     Indication: VULVOVAGINAL MYCOTIC INFECTION
     Route: 067
     Dates: start: 20050821, end: 20050821
  2. TRIAMCINOLONE [Concomitant]

REACTIONS (1)
  - VAGINAL SWELLING [None]
